FAERS Safety Report 6976200-3 (Version None)
Quarter: 2010Q3

REPORT INFORMATION
  Report Type: 
  Country: None (occurrence: None)
  Receive Date: 20100910
  Receipt Date: 20100830
  Transmission Date: 20110219
  Serious: Yes (Hospitalization)
  Sender: FDA-Public Use
  Company Number: CA-JNJFOC-20100900718

PATIENT
  Sex: Female
  Weight: 93.67 kg

DRUGS (6)
  1. REMICADE [Suspect]
     Indication: ANKYLOSING SPONDYLITIS
     Route: 042
  2. STATEX [Suspect]
     Indication: BREAKTHROUGH PAIN
  3. PAXIL [Concomitant]
     Indication: DEPRESSION
     Route: 048
  4. MORPHINE [Concomitant]
  5. PROVERA [Concomitant]
  6. PREMARIN [Concomitant]

REACTIONS (1)
  - OVERDOSE [None]
